FAERS Safety Report 22650776 (Version 1)
Quarter: 2023Q2

REPORT INFORMATION
  Report Type: Report from Study
  Country: JM (occurrence: JM)
  Receive Date: 20230628
  Receipt Date: 20230628
  Transmission Date: 20230722
  Serious: Yes (Other)
  Sender: FDA-Public Use
  Company Number: JM-SUN PHARMACEUTICAL INDUSTRIES LTD-2023R1-396782

PATIENT
  Sex: Female

DRUGS (1)
  1. METHOTREXATE [Suspect]
     Active Substance: METHOTREXATE
     Indication: Systemic lupus erythematosus
     Dosage: WEEKLY
     Route: 065

REACTIONS (2)
  - Exposure during pregnancy [Unknown]
  - Live birth [Unknown]
